FAERS Safety Report 17742898 (Version 1)
Quarter: 2020Q2

REPORT INFORMATION
  Report Type: Spontaneous
  Country: US (occurrence: US)
  Receive Date: 20200505
  Receipt Date: 20200505
  Transmission Date: 20200714
  Serious: No
  Sender: FDA-Public Use
  Company Number: US-ROCHE-2377491

PATIENT
  Sex: Male

DRUGS (1)
  1. ESBRIET [Suspect]
     Active Substance: PIRFENIDONE
     Indication: PRODUCT USED FOR UNKNOWN INDICATION
     Dosage: 1 CAP 3X/DAY X 1 WEEK, THEN 2 CAPS 3X/DAY X 1 WEEK
     Route: 048

REACTIONS (2)
  - Abdominal distension [Unknown]
  - Nausea [Unknown]
